FAERS Safety Report 9346334 (Version 3)
Quarter: 2013Q3

REPORT INFORMATION
  Report Type: Spontaneous
  Country: US (occurrence: US)
  Receive Date: 20130613
  Receipt Date: 20130702
  Transmission Date: 20140515
  Serious: No
  Sender: FDA-Public Use
  Company Number: US-009507513-1305USA017471

PATIENT
  Age: 53 Year
  Sex: Female
  Weight: 68.27 kg

DRUGS (5)
  1. CLARITIN [Suspect]
     Indication: EYE PRURITUS
     Dosage: UNK, UNKNOWN
     Route: 048
     Dates: start: 20130513
  2. CLARITIN [Suspect]
     Indication: THROAT IRRITATION
  3. CLARITIN [Suspect]
     Indication: HYPERSENSITIVITY
  4. SYNTHROID [Concomitant]
     Indication: HYPOTHYROIDISM
     Dosage: UNK, UNKNOWN
  5. VITAMINS (UNSPECIFIED) [Concomitant]
     Indication: PRODUCT USED FOR UNKNOWN INDICATION
     Dosage: UNK, UNKNOWN

REACTIONS (1)
  - Drug ineffective [Unknown]
